FAERS Safety Report 4875637-6 (Version None)
Quarter: 2006Q1

REPORT INFORMATION
  Report Type: 
  Country: None (occurrence: None)
  Receive Date: 20060105
  Receipt Date: 20051223
  Transmission Date: 20060701
  Serious: Yes (Life-Threatening)
  Sender: FDA-Public Use
  Company Number: 2005161573

PATIENT
  Age: 45 Year
  Sex: Female
  Weight: 61.51 kg

DRUGS (3)
  1. LINEZOLID TABLET (LINEZOLID) [Suspect]
     Indication: NOCARDIOSIS
     Dosage: 1200 MG (600 MG, BID), ORAL
     Route: 048
     Dates: start: 20050818, end: 20051006
  2. LINEZOLID SOLUTION, STERILE (LINEZOLID) [Suspect]
     Indication: NOCARDIOSIS
     Dosage: 1200 MG (600 ME1, BID), PARENTERAL
     Route: 051
     Dates: start: 20051007, end: 20051115
  3. DOXYCYCLINE [Concomitant]

REACTIONS (6)
  - DRUG ERUPTION [None]
  - FATIGUE [None]
  - NAUSEA [None]
  - NEUROPATHY PERIPHERAL [None]
  - RASH VESICULAR [None]
  - VOMITING [None]
